FAERS Safety Report 24615737 (Version 3)
Quarter: 2024Q4

REPORT INFORMATION
  Report Type: Spontaneous
  Country: US (occurrence: US)
  Receive Date: 20241113
  Receipt Date: 20241210
  Transmission Date: 20250115
  Serious: Yes (Hospitalization, Other)
  Sender: SANOFI AVENTIS
  Company Number: US-SA-2024SA325945

PATIENT
  Age: 83 Year
  Sex: Female
  Weight: 95.25 kg

DRUGS (31)
  1. DUPIXENT [Suspect]
     Active Substance: DUPILUMAB
     Indication: Eosinophilic oesophagitis
     Dosage: 300 MG, QOW
     Route: 058
  2. DUPIXENT [Suspect]
     Active Substance: DUPILUMAB
     Indication: Asthma
  3. METOPROLOL TARTRATE [Concomitant]
     Active Substance: METOPROLOL TARTRATE
  4. ALBUTEROL SULFATE [Concomitant]
     Active Substance: ALBUTEROL SULFATE
  5. POTASSIUM CHLORIDE [Concomitant]
     Active Substance: POTASSIUM CHLORIDE
  6. MONTELUKAST SODIUM [Concomitant]
     Active Substance: MONTELUKAST\MONTELUKAST SODIUM
  7. GABAPENTIN [Concomitant]
     Active Substance: GABAPENTIN
  8. AZELASTINE [Concomitant]
     Active Substance: AZELASTINE
  9. XARELTO [Concomitant]
     Active Substance: RIVAROXABAN
  10. TRELEGY ELLIPTA [Concomitant]
     Active Substance: FLUTICASONE FUROATE\UMECLIDINIUM BROMIDE\VILANTEROL TRIFENATATE
  11. QUETIAPINE FUMARATE [Concomitant]
     Active Substance: QUETIAPINE FUMARATE
  12. TIZANIDINE [Concomitant]
     Active Substance: TIZANIDINE
  13. SUCRALFATE [Concomitant]
     Active Substance: SUCRALFATE
  14. PANTOPRAZOLE SODIUM [Concomitant]
     Active Substance: PANTOPRAZOLE SODIUM
  15. CETIRIZINE [Concomitant]
     Active Substance: CETIRIZINE HYDROCHLORIDE
  16. OMEPRAZOLE [Concomitant]
     Active Substance: OMEPRAZOLE
  17. DILTIAZEM [Concomitant]
     Active Substance: DILTIAZEM
     Indication: Asthma
     Dosage: UNK
  18. ZYRTEC [Concomitant]
     Active Substance: CETIRIZINE HYDROCHLORIDE
  19. NYSTATIN [Concomitant]
     Active Substance: NYSTATIN
  20. CYANOCOBALAMIN\FOLIC ACID [Concomitant]
     Active Substance: CYANOCOBALAMIN\FOLIC ACID
  21. VITAMIN B1 [Concomitant]
     Active Substance: THIAMINE HYDROCHLORIDE
  22. FERROUS SULFATE [Concomitant]
     Active Substance: FERROUS SULFATE
  23. PEPCID [Concomitant]
     Active Substance: FAMOTIDINE
  24. LASIX [Concomitant]
     Active Substance: FUROSEMIDE
  25. SACCHAROMYCES CEREVISIAE [Concomitant]
     Active Substance: SACCHAROMYCES CEREVISIAE
  26. MUCINEX [Concomitant]
     Active Substance: GUAIFENESIN
  27. DIGOXIN [Concomitant]
     Active Substance: DIGOXIN
  28. TYLENOL [Concomitant]
     Active Substance: ACETAMINOPHEN
  29. FLUTICASONE PROPIONATE [Concomitant]
     Active Substance: FLUTICASONE PROPIONATE
  30. IPRATROPIUM BROMIDE [Concomitant]
     Active Substance: IPRATROPIUM BROMIDE
  31. CICLOPIROX [Concomitant]
     Active Substance: CICLOPIROX

REACTIONS (15)
  - Pneumonia [Unknown]
  - Sepsis [Unknown]
  - Nausea [Unknown]
  - Sinus pain [Unknown]
  - Anaemia [Unknown]
  - Lip swelling [Unknown]
  - Eating disorder [Unknown]
  - Faeces discoloured [Recovered/Resolved]
  - Eye pain [Unknown]
  - Eye discharge [Unknown]
  - Gastritis [Unknown]
  - Diarrhoea [Unknown]
  - Arthralgia [Unknown]
  - Neck surgery [Unknown]
  - Inappropriate schedule of product administration [Unknown]

NARRATIVE: CASE EVENT DATE: 20240901
